FAERS Safety Report 10262414 (Version 1)
Quarter: 2014Q2

REPORT INFORMATION
  Report Type: Spontaneous
  Country: US (occurrence: US)
  Receive Date: 20140626
  Receipt Date: 20140626
  Transmission Date: 20141212
  Serious: No
  Sender: FDA-Public Use
  Company Number: US-BAYER-2014-090662

PATIENT
  Sex: Male

DRUGS (1)
  1. LEVITRA [Suspect]
     Indication: ERECTILE DYSFUNCTION
     Dosage: 20 MG, UNK
     Route: 048
     Dates: start: 2014

REACTIONS (4)
  - Flushing [Recovered/Resolved]
  - Heart rate irregular [Recovered/Resolved]
  - Drug ineffective [None]
  - Erythema [Recovered/Resolved]
